FAERS Safety Report 7215459-4 (Version None)
Quarter: 2011Q1

REPORT INFORMATION
  Report Type: 
  Country: None (occurrence: None)
  Receive Date: 20110107
  Receipt Date: 20101221
  Transmission Date: 20110831
  Serious: Yes (Congenital Anomaly)
  Sender: FDA-Public Use
  Company Number: A0681114A

PATIENT
  Sex: Male
  Weight: 3.2 kg

DRUGS (3)
  1. PAXIL [Suspect]
     Indication: ANXIETY
     Dosage: 10MG THREE TIMES PER DAY
     Dates: start: 20020501, end: 20030101
  2. PRENATAL VITAMINS [Concomitant]
  3. ALPRAZOLAM [Concomitant]
     Indication: ANXIETY
     Dosage: 1MG UNKNOWN

REACTIONS (3)
  - CARDIAC FAILURE [None]
  - DRUG EXPOSURE DURING PREGNANCY [None]
  - HEART DISEASE CONGENITAL [None]
